FAERS Safety Report 5600892-4 (Version None)
Quarter: 2007Q4

REPORT INFORMATION
  Report Type: 
  Country: None (occurrence: None)
  Receive Date: 20071228
  Receipt Date: 20070831
  Transmission Date: 20080405
  Serious: Yes (Life-Threatening)
  Sender: FDA-Public Use
  Company Number: 20070221

PATIENT
  Age: 54 Year
  Sex: Female
  Weight: 51.2565 kg

DRUGS (1)
  1. VENOFER [Suspect]
     Indication: ANAEMIA
     Dosage: 500 MG INTRAVENOUS
     Route: 042
     Dates: start: 20070810

REACTIONS (8)
  - BURNING SENSATION [None]
  - CHEST DISCOMFORT [None]
  - CHEST PAIN [None]
  - CIRCULATORY COLLAPSE [None]
  - DYSPHAGIA [None]
  - DYSPNOEA [None]
  - NAUSEA [None]
  - PAIN IN JAW [None]
